FAERS Safety Report 7790741-0 (Version None)
Quarter: 2011Q3

REPORT INFORMATION
  Report Type: 
  Country: None (occurrence: None)
  Receive Date: 20110930
  Receipt Date: 20110614
  Transmission Date: 20111222
  Serious: No
  Sender: FDA-Public Use
  Company Number: US-BAYER-2011-051425

PATIENT
  Age: 66 Year
  Sex: Male

DRUGS (3)
  1. HYZAAR [Concomitant]
  2. SIMVASTATIN [Concomitant]
     Dosage: UNK
  3. STAXYN [Suspect]
     Indication: ERECTILE DYSFUNCTION
     Dosage: 10 MG, QOD
     Route: 048
     Dates: start: 20110601

REACTIONS (1)
  - ERECTILE DYSFUNCTION [None]
